FAERS Safety Report 8663317 (Version 2)
Quarter: 2012Q4

REPORT INFORMATION
  Report Type: 
  Country: US (occurrence: US)
  Receive Date: 20120713
  Receipt Date: 20121108
  Transmission Date: 20130627
  Serious: Yes (Death)
  Sender: FDA-Public Use
  Company Number: PHEH2012US013528

PATIENT
  Age: 47 Year
  Sex: Male
  Weight: 176 kg

DRUGS (2)
  1. CLOZARIL [Suspect]
     Indication: SCHIZOPHRENIA
     Route: 048
  2. CLOZARIL [Suspect]
     Dosage: 500 mg, (100 mg at morning and 400 mg HS)
     Dates: start: 20111108

REACTIONS (1)
  - Death [Fatal]
